FAERS Safety Report 10156553 (Version 1)
Quarter: 2014Q2

REPORT INFORMATION
  Report Type: Spontaneous
  Country: JP (occurrence: None)
  Receive Date: 20140505
  Receipt Date: 20140505
  Transmission Date: 20141212
  Serious: Yes (Other)
  Sender: FDA-Public Use
  Company Number: ABR_01621_2014

PATIENT
  Age: 57 Year
  Sex: Female

DRUGS (1)
  1. GLIADEL [Suspect]
     Indication: MALIGNANT GLIOMA
     Dosage: 8 DF  1X INTRACEREBRAL
     Dates: start: 20140312

REACTIONS (1)
  - Brain oedema [None]
